FAERS Safety Report 23788290 (Version 1)
Quarter: 2024Q2

REPORT INFORMATION
  Report Type: Spontaneous
  Country: US (occurrence: US)
  Receive Date: 20240426
  Receipt Date: 20240426
  Transmission Date: 20240715
  Serious: Yes (Other)
  Sender: FDA-Public Use
  Company Number: US-REGENERON PHARMACEUTICALS, INC.-2024-063501

PATIENT
  Age: 93 Year
  Sex: Female

DRUGS (2)
  1. EYLEA [Suspect]
     Active Substance: AFLIBERCEPT
     Indication: Neovascular age-related macular degeneration
     Dosage: UNK, BOTH EYES; FORMULATION: UNKNOWN
     Dates: start: 20240419
  2. XARELTO [Concomitant]
     Active Substance: RIVAROXABAN
     Indication: Product used for unknown indication

REACTIONS (7)
  - Blindness transient [Recovered/Resolved]
  - Ophthalmic artery occlusion [Unknown]
  - Visual impairment [Unknown]
  - Colour blindness [Unknown]
  - Eye discharge [Unknown]
  - Eye swelling [Unknown]
  - Drug hypersensitivity [Unknown]

NARRATIVE: CASE EVENT DATE: 20240401
